FAERS Safety Report 15745817 (Version 2)
Quarter: 2019Q1

REPORT INFORMATION
  Report Type: Spontaneous
  Country: US (occurrence: US)
  Receive Date: 20181220
  Receipt Date: 20190129
  Transmission Date: 20190417
  Serious: No
  Sender: FDA-Public Use
  Company Number: US-NEUROCRINE BIOSCIENCES INC.-2018NBI03516

PATIENT
  Age: 69 Year
  Sex: Female

DRUGS (2)
  1. INGREZZA [Suspect]
     Active Substance: VALBENAZINE
     Indication: TARDIVE DYSKINESIA
     Route: 048
     Dates: start: 20181207
  2. AUSTEDO [Concomitant]
     Active Substance: DEUTETRABENAZINE

REACTIONS (5)
  - Drug intolerance [Recovering/Resolving]
  - Gait disturbance [Recovering/Resolving]
  - Adverse drug reaction [Recovering/Resolving]
  - Emotional distress [Recovering/Resolving]
  - Somnolence [Recovered/Resolved]

NARRATIVE: CASE EVENT DATE: 201812
